FAERS Safety Report 7430716-4 (Version None)
Quarter: 2011Q2

REPORT INFORMATION
  Report Type: 
  Country: None (occurrence: None)
  Receive Date: 20110421
  Receipt Date: 20110419
  Transmission Date: 20111010
  Serious: Yes (Death, Hospitalization)
  Sender: FDA-Public Use
  Company Number: JP-B.I. PHARMACEUTICALS,INC./RIDGEFIELD-2011-BP-11154NB

PATIENT
  Age: 81 Year
  Sex: Female

DRUGS (6)
  1. HERBESSER [Concomitant]
     Dosage: 200 MG
     Route: 048
  2. PRAZAXA [Suspect]
     Indication: ATRIAL FIBRILLATION
     Dosage: 220 MG
     Route: 048
     Dates: start: 20110401, end: 20110419
  3. DIGOXIN [Concomitant]
     Dosage: 1.25 MG
     Route: 048
  4. URSO 250 [Concomitant]
     Dosage: 600 MG
     Route: 048
  5. SEIBULE [Concomitant]
     Dosage: 150 MG
     Route: 048
  6. NU-LOTAN [Concomitant]
     Dosage: 50 MG
     Route: 048

REACTIONS (7)
  - HAEMOPTYSIS [None]
  - OESOPHAGEAL HAEMORRHAGE [None]
  - RENAL FAILURE ACUTE [None]
  - RESPIRATORY FAILURE [None]
  - PNEUMONIA [None]
  - ANAEMIA [None]
  - PULMONARY ALVEOLAR HAEMORRHAGE [None]
